FAERS Safety Report 4636719-7 (Version None)
Quarter: 2005Q2

REPORT INFORMATION
  Report Type: 
  Country: None (occurrence: None)
  Receive Date: 20050414
  Receipt Date: 20050406
  Transmission Date: 20051028
  Serious: Yes (Hospitalization, Other)
  Sender: FDA-Public Use
  Company Number: 2005056055

PATIENT
  Age: 80 Year
  Sex: Female

DRUGS (5)
  1. NORVASC [Suspect]
     Indication: HYPERTENSION
     Dosage: 5 MG, ORAL
     Route: 048
     Dates: start: 20041101, end: 20050330
  2. TEPRENONE (TEPRENONE) [Concomitant]
  3. IFENPRODIL TARTRATE (IFENPRODIL TARTRATE) [Concomitant]
  4. THIAMINE HCL [Concomitant]
  5. LANSOPRAZOLE [Concomitant]

REACTIONS (2)
  - BRADYCARDIA [None]
  - CARDIAC ARREST [None]
